FAERS Safety Report 16008197 (Version 3)
Quarter: 2019Q1

REPORT INFORMATION
  Report Type: Report from Study
  Country: None (occurrence: US)
  Receive Date: 20190224
  Receipt Date: 20190328
  Transmission Date: 20190418
  Serious: Yes (Hospitalization)
  Sender: FDA-Public Use
  Company Number: US-ABBVIE-19K-163-2676579-00

PATIENT
  Sex: Female

DRUGS (3)
  1. HUMIRA [Suspect]
     Active Substance: ADALIMUMAB
     Indication: CROHN^S DISEASE
     Dosage: DAY 1
     Route: 058
     Dates: start: 20190118, end: 20190118
  2. HUMIRA [Suspect]
     Active Substance: ADALIMUMAB
     Dosage: DAY 15
     Route: 058
     Dates: start: 20190202, end: 20190202
  3. HUMIRA [Suspect]
     Active Substance: ADALIMUMAB
     Dosage: DAY 29
     Route: 058
     Dates: start: 201903

REACTIONS (8)
  - Decreased appetite [Unknown]
  - Depression [Unknown]
  - Food refusal [Unknown]
  - Insomnia [Unknown]
  - Fear [Unknown]
  - Eating disorder symptom [Unknown]
  - Depressed mood [Unknown]
  - Anxiety [Unknown]

NARRATIVE: CASE EVENT DATE: 2019
